FAERS Safety Report 4334420-0 (Version None)
Quarter: 2004Q1

REPORT INFORMATION
  Report Type: 
  Country: None (occurrence: None)
  Receive Date: 20040326
  Receipt Date: 20031201
  Transmission Date: 20041129
  Serious: No
  Sender: FDA-Public Use
  Company Number: WAES 0312USA00201

PATIENT
  Age: 13 Year
  Sex: Female

DRUGS (1)
  1. INVANZ [Suspect]
     Dates: start: 20031130

REACTIONS (1)
  - RASH GENERALISED [None]
